FAERS Safety Report 12534627 (Version 1)
Quarter: 2016Q3

REPORT INFORMATION
  Report Type: Report from Study
  Country: US (occurrence: US)
  Receive Date: 20160706
  Receipt Date: 20160706
  Transmission Date: 20161109
  Serious: Yes (Other)
  Sender: FDA-Public Use
  Company Number: US-ABBVIE-16P-163-1669735-00

PATIENT
  Age: 71 Year
  Sex: Male

DRUGS (3)
  1. RIBAVIRIN. [Suspect]
     Active Substance: RIBAVIRIN
     Indication: CHRONIC HEPATITIS C
     Route: 048
     Dates: start: 20150610, end: 20150711
  2. VIEKIRA PAK [Suspect]
     Active Substance: DASABUVIR\OMBITASVIR\PARITAPREVIR\RITONAVIR
     Indication: CHRONIC HEPATITIS C
     Route: 048
     Dates: start: 20150610, end: 20151124
  3. RIBAVIRIN. [Suspect]
     Active Substance: RIBAVIRIN
     Route: 048
     Dates: start: 20150712, end: 20151124

REACTIONS (30)
  - Increased tendency to bruise [Unknown]
  - Ear pain [Unknown]
  - Vomiting [Unknown]
  - Stress [Unknown]
  - Asthenia [Unknown]
  - Dyspnoea [Unknown]
  - Anaemia [Unknown]
  - Muscle spasms [Unknown]
  - Injection site pain [Unknown]
  - Fall [Unknown]
  - Nausea [Unknown]
  - Feeling cold [Unknown]
  - Carotid artery occlusion [Unknown]
  - Night blindness [Unknown]
  - Headache [Unknown]
  - Balance disorder [Unknown]
  - Confusional state [Unknown]
  - Herpes zoster [Unknown]
  - Diarrhoea [Unknown]
  - Insomnia [Unknown]
  - Urine analysis abnormal [Unknown]
  - Loss of consciousness [Unknown]
  - Jugular vein distension [Unknown]
  - Dizziness [Unknown]
  - Deafness [Unknown]
  - Anxiety [Unknown]
  - Rash [Unknown]
  - Peripheral swelling [Unknown]
  - Dizziness [Unknown]
  - Headache [Unknown]

NARRATIVE: CASE EVENT DATE: 20151010
